FAERS Safety Report 23029308 (Version 4)
Quarter: 2024Q1

REPORT INFORMATION
  Report Type: Spontaneous
  Country: IL (occurrence: IL)
  Receive Date: 20231004
  Receipt Date: 20240102
  Transmission Date: 20240409
  Serious: Yes (Hospitalization, Other)
  Sender: FDA-Public Use
  Company Number: IL-ALXN-A202312724

PATIENT
  Age: 4 Year
  Sex: Male

DRUGS (25)
  1. KANUMA [Suspect]
     Active Substance: SEBELIPASE ALFA
     Indication: Lysosomal acid lipase deficiency
     Dosage: UNK UNK, QW
     Route: 058
     Dates: start: 20190927, end: 20210222
  2. KANUMA [Suspect]
     Active Substance: SEBELIPASE ALFA
     Dosage: UNK, QW
     Route: 058
     Dates: start: 20210518, end: 20210614
  3. KANUMA [Suspect]
     Active Substance: SEBELIPASE ALFA
     Dosage: UNK, QW
     Route: 058
     Dates: start: 20210615, end: 20221108
  4. KANUMA [Suspect]
     Active Substance: SEBELIPASE ALFA
     Dosage: UNK, QW
     Route: 058
     Dates: start: 20221115
  5. ADEK [Concomitant]
     Indication: Vitamin A deficiency
     Dosage: 1 MILLILITER, QD
     Route: 048
  6. ADEK [Concomitant]
     Indication: Vitamin D deficiency
  7. ADEK [Concomitant]
     Indication: Vitamin E deficiency
  8. ADEK [Concomitant]
     Indication: Vitamin K deficiency
  9. AUGMENTIN [Concomitant]
     Active Substance: AMOXICILLIN\CLAVULANATE POTASSIUM
     Indication: Sepsis
     Dosage: UNK
     Route: 042
  10. Calciless [Concomitant]
     Indication: Electrolyte imbalance
     Dosage: 100 MILLIGRAM, BID
     Route: 048
  11. Sandoz calcium c [Concomitant]
     Indication: Electrolyte imbalance
     Dosage: 300 MILLIGRAM, BID
     Route: 048
  12. CEFUROXIME [Concomitant]
     Active Substance: CEFUROXIME
     Indication: Urinary tract infection
     Dosage: 200 MILLIGRAM, BID
     Route: 048
  13. LEVOTHYROXINE [Concomitant]
     Active Substance: LEVOTHYROXINE
     Indication: Hypothyroidism
     Dosage: 50 MICROGRAM, QD
     Route: 048
  14. LEVOTHYROXINE [Concomitant]
     Active Substance: LEVOTHYROXINE
     Dosage: 25 MICROGRAM, QD
     Route: 048
  15. LEVOTHYROXINE [Concomitant]
     Active Substance: LEVOTHYROXINE
     Dosage: 35 MICROGRAM, QD
     Route: 048
  16. ERTAPENEM [Concomitant]
     Active Substance: ERTAPENEM
     Indication: Bacteraemia
     Dosage: 180 MILLIGRAM, BID
     Route: 042
  17. FLAGYL [Concomitant]
     Active Substance: METRONIDAZOLE\METRONIDAZOLE HYDROCHLORIDE
     Indication: Gastroenteritis
     Dosage: 120 MILLIGRAM, TID
     Route: 048
  18. FLAGYL [Concomitant]
     Active Substance: METRONIDAZOLE\METRONIDAZOLE HYDROCHLORIDE
     Indication: Rotavirus infection
  19. IRON POLYMALTOSE [Concomitant]
     Active Substance: IRON POLYMALTOSE
     Indication: Anaemia
     Dosage: 42.5 MILLIGRAM, QD
     Route: 048
  20. FERRIPEL [Concomitant]
     Indication: Iron deficiency
     Dosage: 30 MILLIGRAM, QD
     Route: 048
  21. MEROPENEM [Concomitant]
     Active Substance: MEROPENEM
     Indication: Pneumonia
     Dosage: UNK
     Route: 042
  22. SOPA K [Concomitant]
     Indication: Hypokalaemia
     Dosage: 25 MILLIEQUIVALENT, QD
     Route: 048
  23. VANCOMYCIN [Concomitant]
     Active Substance: VANCOMYCIN
     Indication: Bacteraemia
     Dosage: 150 MILLIGRAM, TID
     Route: 042
  24. VITAMIN D [Concomitant]
     Active Substance: VITAMIN D NOS
     Indication: Vitamin D deficiency
     Dosage: 2000 INTERNATIONAL UNIT, QD
     Route: 048
  25. VITAMIN D [Concomitant]
     Active Substance: VITAMIN D NOS
     Dosage: 6000 INTERNATIONAL UNIT, QD
     Route: 048

REACTIONS (6)
  - Failure to thrive [Unknown]
  - Renal tubular dysfunction [Unknown]
  - Pulmonary embolism [Not Recovered/Not Resolved]
  - Pneumonia adenoviral [Unknown]
  - Superior vena cava syndrome [Unknown]
  - Device related thrombosis [Unknown]

NARRATIVE: CASE EVENT DATE: 20230901
